FAERS Safety Report 4361899-0 (Version None)
Quarter: 2004Q2

REPORT INFORMATION
  Report Type: 
  Country: None (occurrence: None)
  Receive Date: 20040521
  Receipt Date: 20030428
  Transmission Date: 20050107
  Serious: No
  Sender: FDA-Public Use
  Company Number: US-GLAXOSMITHKLINE-A0406411A

PATIENT
  Age: 52 Year
  Sex: Female

DRUGS (4)
  1. THORAZINE [Suspect]
     Indication: SCHIZOPHRENIA
     Dosage: 200MG PER DAY
     Route: 048
     Dates: start: 19930101, end: 20030401
  2. WELLBUTRIN [Concomitant]
     Route: 065
  3. NEURONTIN [Concomitant]
     Route: 065
  4. KLONOPIN [Concomitant]
     Route: 065

REACTIONS (4)
  - DEREALISATION [None]
  - DYSKINESIA [None]
  - PAIN IN EXTREMITY [None]
  - TARDIVE DYSKINESIA [None]
